FAERS Safety Report 9739228 (Version 1)
Quarter: 2013Q4

REPORT INFORMATION
  Report Type: Spontaneous
  Country: US (occurrence: US)
  Receive Date: 20131209
  Receipt Date: 20131209
  Transmission Date: 20140711
  Serious: Yes (Death)
  Sender: FDA-Public Use
  Company Number: US-SA-2013SA126886

PATIENT
  Age: 70 Year
  Sex: Female

DRUGS (2)
  1. LANTUS [Suspect]
     Indication: DIABETES MELLITUS
     Dosage: DOSE:160 UNIT(S)
     Route: 058
  2. APIDRA [Suspect]
     Dosage: DOSE:45 UNIT(S)
     Route: 058

REACTIONS (1)
  - Death [Fatal]
